FAERS Safety Report 15887081 (Version 1)
Quarter: 2019Q1

REPORT INFORMATION
  Report Type: Spontaneous
  Country: US (occurrence: US)
  Receive Date: 20190130
  Receipt Date: 20190130
  Transmission Date: 20190417
  Serious: No
  Sender: FDA-Public Use
  Company Number: US-AUROBINDO-AUR-APU-2018-054414

PATIENT
  Age: 70 Year
  Sex: Female

DRUGS (5)
  1. DULOXETINE. [Suspect]
     Active Substance: DULOXETINE
     Dosage: 60 MILLIGRAM, ONCE A DAY
     Route: 065
     Dates: start: 20181008, end: 20181021
  2. DULOXETINE. [Suspect]
     Active Substance: DULOXETINE
     Dosage: 30 MILLIGRAM, ONCE A DAY
     Route: 065
  3. CELEBREX [Concomitant]
     Active Substance: CELECOXIB
     Indication: PRODUCT USED FOR UNKNOWN INDICATION
  4. DULOXETINE. [Suspect]
     Active Substance: DULOXETINE
     Indication: MAJOR DEPRESSION
     Dosage: 30 MILLIGRAM, ONCE A DAY
     Route: 065
     Dates: start: 20181001, end: 20181008
  5. LEVOTHYROXINE. [Concomitant]
     Active Substance: LEVOTHYROXINE
     Indication: PRODUCT USED FOR UNKNOWN INDICATION

REACTIONS (2)
  - Somnolence [Recovered/Resolved]
  - Constipation [Unknown]

NARRATIVE: CASE EVENT DATE: 20181008
